FAERS Safety Report 19255956 (Version 2)
Quarter: 2021Q3

REPORT INFORMATION
  Report Type: Spontaneous
  Country: CA (occurrence: CA)
  Receive Date: 20210514
  Receipt Date: 20210713
  Transmission Date: 20211014
  Serious: Yes (Hospitalization, Disabling)
  Sender: FDA-Public Use
  Company Number: CA-ROCHE-2823672

PATIENT
  Age: 63 Year
  Sex: Female

DRUGS (93)
  1. ATENOLOL. [Suspect]
     Active Substance: ATENOLOL
     Indication: PRODUCT USED FOR UNKNOWN INDICATION
     Route: 048
  2. CELECOXIB. [Suspect]
     Active Substance: CELECOXIB
     Indication: ARTHRITIS
     Route: 065
  3. CO ATENOLOL [Suspect]
     Active Substance: ATENOLOL
     Indication: PRODUCT USED FOR UNKNOWN INDICATION
     Route: 065
  4. FOLIC ACID. [Suspect]
     Active Substance: FOLIC ACID
     Route: 065
  5. FOLIC ACID. [Suspect]
     Active Substance: FOLIC ACID
     Route: 065
  6. HYDROXYCHLOROQUINE [Suspect]
     Active Substance: HYDROXYCHLOROQUINE
     Route: 065
  7. NAPROSYN [Suspect]
     Active Substance: NAPROXEN
     Route: 048
  8. NAPROSYN [Suspect]
     Active Substance: NAPROXEN
     Route: 065
  9. NAPROXEN. [Suspect]
     Active Substance: NAPROXEN
     Route: 048
  10. NAPROXEN. [Suspect]
     Active Substance: NAPROXEN
     Route: 048
  11. NAPROXEN SODIUM. [Suspect]
     Active Substance: NAPROXEN SODIUM
     Route: 048
  12. ORENCIA [Suspect]
     Active Substance: ABATACEPT
     Route: 065
  13. PANTOPRAZOLE [Suspect]
     Active Substance: PANTOPRAZOLE
     Indication: RHEUMATOID ARTHRITIS
     Route: 048
  14. PREDNISONE. [Suspect]
     Active Substance: PREDNISONE
     Indication: RHEUMATOID ARTHRITIS
     Route: 065
  15. VITAMIN C [Suspect]
     Active Substance: ASCORBIC ACID
     Route: 065
  16. METHOTREXATE. [Concomitant]
     Active Substance: METHOTREXATE
  17. ADALIMUMAB [Suspect]
     Active Substance: ADALIMUMAB
     Indication: RHEUMATOID ARTHRITIS
     Route: 058
  18. FERROUS FUMARATE [Suspect]
     Active Substance: FERROUS FUMARATE
     Indication: PRODUCT USED FOR UNKNOWN INDICATION
     Route: 065
  19. FOLIC ACID. [Suspect]
     Active Substance: FOLIC ACID
     Route: 065
  20. NAPROSYN [Suspect]
     Active Substance: NAPROXEN
     Route: 048
  21. ORENCIA [Suspect]
     Active Substance: ABATACEPT
     Route: 065
  22. PANTOPRAZOLE SODIUM ANHYDROUS [Suspect]
     Active Substance: PANTOPRAZOLE SODIUM ANHYDROUS
     Indication: PRODUCT USED FOR UNKNOWN INDICATION
     Route: 065
  23. PREDNISONE. [Suspect]
     Active Substance: PREDNISONE
     Route: 065
  24. SULFASALAZINE. [Suspect]
     Active Substance: SULFASALAZINE
     Indication: RHEUMATOID ARTHRITIS
     Route: 048
  25. NAPROXEN. [Suspect]
     Active Substance: NAPROXEN
     Route: 048
  26. ENBREL [Suspect]
     Active Substance: ETANERCEPT
     Indication: UVEITIS
     Route: 065
  27. NAPROSYN [Suspect]
     Active Substance: NAPROXEN
     Route: 048
  28. NAPROSYN [Suspect]
     Active Substance: NAPROXEN
     Route: 065
  29. NAPROXEN. [Suspect]
     Active Substance: NAPROXEN
     Route: 048
  30. NAPROXEN. [Suspect]
     Active Substance: NAPROXEN
     Route: 048
  31. NAPROXEN. [Suspect]
     Active Substance: NAPROXEN
     Route: 048
  32. ORENCIA [Suspect]
     Active Substance: ABATACEPT
     Indication: PRODUCT USED FOR UNKNOWN INDICATION
     Route: 065
  33. PANTOPRAZOLE [Suspect]
     Active Substance: PANTOPRAZOLE
     Indication: PRODUCT USED FOR UNKNOWN INDICATION
     Route: 065
  34. PANTOPRAZOLE SODIUM. [Suspect]
     Active Substance: PANTOPRAZOLE SODIUM
     Route: 065
  35. PLAQUENIL [Suspect]
     Active Substance: HYDROXYCHLOROQUINE SULFATE
     Indication: PRODUCT USED FOR UNKNOWN INDICATION
     Route: 065
  36. ACTEMRA [Suspect]
     Active Substance: TOCILIZUMAB
     Indication: RHEUMATOID ARTHRITIS
     Route: 065
  37. CO ATENOLOL [Suspect]
     Active Substance: ATENOLOL
     Route: 065
  38. FERROUS FUMARATE;FOLIC ACID [Suspect]
     Active Substance: FERROUS FUMARATE\FOLIC ACID
     Route: 065
  39. FOLIC ACID. [Suspect]
     Active Substance: FOLIC ACID
     Indication: PRODUCT USED FOR UNKNOWN INDICATION
     Route: 065
  40. HUMIRA [Suspect]
     Active Substance: ADALIMUMAB
     Indication: RHEUMATOID ARTHRITIS
     Route: 058
  41. NAPROXEN SODIUM. [Suspect]
     Active Substance: NAPROXEN SODIUM
     Route: 048
  42. PANTOPRAZOLE [Suspect]
     Active Substance: PANTOPRAZOLE
     Route: 065
  43. PLAQUENIL [Suspect]
     Active Substance: HYDROXYCHLOROQUINE SULFATE
     Route: 065
  44. HYDROXYCHLOROQUINE SULFATE. [Suspect]
     Active Substance: HYDROXYCHLOROQUINE SULFATE
     Indication: RHEUMATOID ARTHRITIS
     Route: 065
  45. NAPROXEN. [Suspect]
     Active Substance: NAPROXEN
     Indication: PRODUCT USED FOR UNKNOWN INDICATION
     Route: 048
  46. NAPROXEN. [Suspect]
     Active Substance: NAPROXEN
     Route: 048
  47. ERELZI [Suspect]
     Active Substance: ETANERCEPT-SZZS
     Indication: RHEUMATOID ARTHRITIS
     Route: 058
  48. NAPROXEN. [Suspect]
     Active Substance: NAPROXEN
     Route: 065
  49. PANTOLOC [Suspect]
     Active Substance: PANTOPRAZOLE SODIUM
     Route: 065
  50. CO ATENOLOL [Suspect]
     Active Substance: ATENOLOL
     Route: 065
  51. FERROUS FUMARATE;FOLIC ACID [Suspect]
     Active Substance: FERROUS FUMARATE\FOLIC ACID
     Indication: PRODUCT USED FOR UNKNOWN INDICATION
     Route: 065
  52. HYDROXYCHLOROQUINE [Suspect]
     Active Substance: HYDROXYCHLOROQUINE
     Indication: PRODUCT USED FOR UNKNOWN INDICATION
     Route: 065
  53. HYDROXYCHLOROQUINE [Suspect]
     Active Substance: HYDROXYCHLOROQUINE
     Route: 065
  54. LEFLUNOMIDE. [Suspect]
     Active Substance: LEFLUNOMIDE
     Indication: RHEUMATOID ARTHRITIS
     Route: 048
  55. METHOTREXATE. [Suspect]
     Active Substance: METHOTREXATE
     Route: 065
  56. NAPROSYN [Suspect]
     Active Substance: NAPROXEN
     Indication: PRODUCT USED FOR UNKNOWN INDICATION
     Route: 048
  57. NAPROXEN. [Suspect]
     Active Substance: NAPROXEN
     Indication: UVEITIS
     Route: 048
  58. NAPROXEN. [Suspect]
     Active Substance: NAPROXEN
     Route: 048
  59. NAPROXEN SODIUM. [Suspect]
     Active Substance: NAPROXEN SODIUM
     Route: 065
  60. NAPROXEN SODIUM. [Suspect]
     Active Substance: NAPROXEN SODIUM
     Route: 048
  61. PALAFER CF [Suspect]
     Active Substance: ASCORBIC ACID\FERROUS FUMARATE\FOLIC ACID
     Indication: PRODUCT USED FOR UNKNOWN INDICATION
     Route: 065
  62. ARAVA [Suspect]
     Active Substance: LEFLUNOMIDE
     Indication: RHEUMATOID ARTHRITIS
     Route: 048
  63. ATENOLOL. [Suspect]
     Active Substance: ATENOLOL
     Route: 048
  64. ENBREL [Suspect]
     Active Substance: ETANERCEPT
     Indication: JUVENILE IDIOPATHIC ARTHRITIS
  65. FOLIC ACID. [Suspect]
     Active Substance: FOLIC ACID
     Route: 065
  66. FOLIC ACID. [Suspect]
     Active Substance: FOLIC ACID
     Route: 065
  67. HYDROXYCHLOROQUINE [Suspect]
     Active Substance: HYDROXYCHLOROQUINE
     Route: 065
  68. NAPROXEN. [Suspect]
     Active Substance: NAPROXEN
     Indication: JUVENILE IDIOPATHIC ARTHRITIS
     Route: 048
  69. NAPROXEN. [Suspect]
     Active Substance: NAPROXEN
     Route: 048
  70. NAPROXEN. [Suspect]
     Active Substance: NAPROXEN
     Route: 065
  71. NAPROXEN SODIUM. [Suspect]
     Active Substance: NAPROXEN SODIUM
     Route: 048
  72. ORENCIA [Suspect]
     Active Substance: ABATACEPT
     Route: 042
  73. PALAFER [Suspect]
     Active Substance: FERROUS FUMARATE
     Indication: PRODUCT USED FOR UNKNOWN INDICATION
     Route: 065
  74. PANTOLOC [Suspect]
     Active Substance: PANTOPRAZOLE SODIUM
     Indication: PRODUCT USED FOR UNKNOWN INDICATION
     Route: 065
  75. PANTOPRAZOLE SODIUM. [Suspect]
     Active Substance: PANTOPRAZOLE SODIUM
     Route: 065
  76. PLAQUENIL [Suspect]
     Active Substance: HYDROXYCHLOROQUINE SULFATE
     Route: 065
  77. PLAQUENIL [Suspect]
     Active Substance: HYDROXYCHLOROQUINE SULFATE
     Route: 065
  78. VITAMIN C [Suspect]
     Active Substance: ASCORBIC ACID
     Indication: PRODUCT USED FOR UNKNOWN INDICATION
     Route: 065
  79. VITAMIN C [Suspect]
     Active Substance: ASCORBIC ACID
     Route: 065
  80. CELECOXIB. [Concomitant]
     Active Substance: CELECOXIB
  81. ENBREL [Suspect]
     Active Substance: ETANERCEPT
     Indication: RHEUMATOID ARTHRITIS
     Route: 058
  82. ERELZI [Suspect]
     Active Substance: ETANERCEPT-SZZS
     Route: 058
  83. FERROUS FUMARATE [Suspect]
     Active Substance: FERROUS FUMARATE
     Route: 065
  84. FOLIC ACID. [Suspect]
     Active Substance: FOLIC ACID
     Route: 065
  85. HUMIRA [Suspect]
     Active Substance: ADALIMUMAB
     Indication: UVEITIS
     Route: 065
  86. HUMIRA [Suspect]
     Active Substance: ADALIMUMAB
     Indication: JUVENILE IDIOPATHIC ARTHRITIS
     Route: 058
  87. METHOTREXATE. [Suspect]
     Active Substance: METHOTREXATE
     Indication: RHEUMATOID ARTHRITIS
     Route: 048
  88. NAPROXEN. [Suspect]
     Active Substance: NAPROXEN
     Route: 048
  89. NAPROXEN SODIUM. [Suspect]
     Active Substance: NAPROXEN SODIUM
     Indication: RHEUMATOID ARTHRITIS
     Route: 065
  90. PANTOPRAZOLE SODIUM. [Suspect]
     Active Substance: PANTOPRAZOLE SODIUM
     Indication: PRODUCT USED FOR UNKNOWN INDICATION
     Route: 065
  91. REMICADE [Suspect]
     Active Substance: INFLIXIMAB
     Indication: PRODUCT USED FOR UNKNOWN INDICATION
     Route: 065
  92. XELJANZ [Suspect]
     Active Substance: TOFACITINIB CITRATE
     Indication: RHEUMATOID ARTHRITIS
     Route: 065
  93. NAPROXEN. [Suspect]
     Active Substance: NAPROXEN
     Route: 048

REACTIONS (28)
  - Arthropathy [Not Recovered/Not Resolved]
  - Condition aggravated [Not Recovered/Not Resolved]
  - Drug hypersensitivity [Not Recovered/Not Resolved]
  - Red blood cell sedimentation rate abnormal [Not Recovered/Not Resolved]
  - C-reactive protein increased [Not Recovered/Not Resolved]
  - Drug-induced liver injury [Not Recovered/Not Resolved]
  - Haemoglobin decreased [Not Recovered/Not Resolved]
  - Pain [Not Recovered/Not Resolved]
  - Multiple fractures [Not Recovered/Not Resolved]
  - Musculoskeletal pain [Not Recovered/Not Resolved]
  - Peripheral swelling [Not Recovered/Not Resolved]
  - Rash [Not Recovered/Not Resolved]
  - Fall [Unknown]
  - C-reactive protein abnormal [Not Recovered/Not Resolved]
  - Osteoporosis [Not Recovered/Not Resolved]
  - Disability [Not Recovered/Not Resolved]
  - Fatigue [Not Recovered/Not Resolved]
  - Haematocrit decreased [Not Recovered/Not Resolved]
  - Pain in extremity [Not Recovered/Not Resolved]
  - Contraindicated product administered [Unknown]
  - Arthralgia [Not Recovered/Not Resolved]
  - Femur fracture [Not Recovered/Not Resolved]
  - Joint swelling [Not Recovered/Not Resolved]
  - Red blood cell count decreased [Not Recovered/Not Resolved]
  - Rheumatoid arthritis [Not Recovered/Not Resolved]
  - Impaired healing [Not Recovered/Not Resolved]
  - Synovitis [Not Recovered/Not Resolved]
  - Drug ineffective [Unknown]
